FAERS Safety Report 21106681 (Version 1)
Quarter: 2022Q3

REPORT INFORMATION
  Report Type: Spontaneous
  Country: US (occurrence: US)
  Receive Date: 20220720
  Receipt Date: 20220720
  Transmission Date: 20221027
  Serious: No
  Sender: FDA-Public Use
  Company Number: US-PERRIGO-21US010941

PATIENT
  Sex: Male
  Weight: 70.295 kg

DRUGS (5)
  1. MINOXIDIL [Suspect]
     Active Substance: MINOXIDIL
     Indication: Hair growth rate abnormal
     Dosage: 1 ML, BID
     Route: 061
     Dates: start: 2016
  2. MINOXIDIL [Suspect]
     Active Substance: MINOXIDIL
     Dosage: 1 ML, BID
     Route: 061
     Dates: start: 2016
  3. LUTEIN                             /01638501/ [Concomitant]
     Indication: Supplementation therapy
     Dosage: UNKNOWN, UNKNOWN
     Route: 065
  4. VITAMIN C [Concomitant]
     Active Substance: ASCORBIC ACID
     Indication: Supplementation therapy
     Dosage: 250 MG, UNKNOWN
     Route: 065
     Dates: start: 2020
  5. COLLAGEN [Concomitant]
     Active Substance: COLLAGEN
     Indication: Supplementation therapy
     Dosage: 10 G, UNKNOWN
     Route: 065
     Dates: start: 202107

REACTIONS (4)
  - Condition aggravated [Not Recovered/Not Resolved]
  - Application site exfoliation [Recovered/Resolved]
  - Application site pruritus [Recovered/Resolved]
  - Therapeutic product effect decreased [Unknown]

NARRATIVE: CASE EVENT DATE: 20160101
